FAERS Safety Report 8011279-1 (Version None)
Quarter: 2011Q4

REPORT INFORMATION
  Report Type: 
  Country: None (occurrence: None)
  Receive Date: 20111227
  Receipt Date: 20111227
  Transmission Date: 20120403
  Serious: No
  Sender: FDA-Public Use
  Company Number: None

PATIENT
  Age: 60 Year
  Sex: Female
  Weight: 58.967 kg

DRUGS (8)
  1. VITAMIN D [Concomitant]
     Route: 048
  2. OMNARIS NASAL SPRAY [Concomitant]
     Route: 045
  3. PATENASE NASAL SPRAY [Concomitant]
     Route: 045
  4. MULTI-VITAMIN [Concomitant]
     Route: 048
  5. FORTEO [Suspect]
     Indication: OSTEOPOROSIS
     Dosage: 20 MCG
     Route: 058
     Dates: start: 20111101, end: 20111128
  6. FORTEO [Concomitant]
     Dosage: 20 MCG
     Route: 058
     Dates: start: 20111129, end: 20111225
  7. ATENOLOL [Concomitant]
     Route: 048
  8. MAGNESIUM GLYCINATE [Concomitant]
     Route: 048

REACTIONS (4)
  - BONE PAIN [None]
  - ARTHRALGIA [None]
  - GAIT DISTURBANCE [None]
  - PAIN IN JAW [None]
